FAERS Safety Report 9244773 (Version 1)
Quarter: 2013Q2

REPORT INFORMATION
  Report Type: Spontaneous
  Country: US (occurrence: US)
  Receive Date: 20130422
  Receipt Date: 20130422
  Transmission Date: 20140414
  Serious: Yes (Hospitalization, Other)
  Sender: FDA-Public Use
  Company Number: US-SANOFI-AVENTIS-2013SA040037

PATIENT
  Age: 59 Year
  Sex: Male

DRUGS (3)
  1. LANTUS SOLOSTAR [Suspect]
     Indication: TYPE 2 DIABETES MELLITUS
     Dosage: START DATE: 2-3 YEARS AGO DOSE:70 UNIT(S)
     Dates: end: 20130415
  2. SOLOSTAR [Suspect]
     Indication: TYPE 2 DIABETES MELLITUS
     Dosage: START DATE: 2-3 YEARS AGO.
     Dates: end: 20130415
  3. NOVOLOG [Concomitant]

REACTIONS (3)
  - Hospitalisation [Unknown]
  - Malaise [Unknown]
  - Foot amputation [Unknown]
